FAERS Safety Report 7650997-1 (Version None)
Quarter: 2011Q3

REPORT INFORMATION
  Report Type: 
  Country: None (occurrence: None)
  Receive Date: 20110727
  Receipt Date: 20110711
  Transmission Date: 20111222
  Serious: Yes (Life-Threatening, Hospitalization)
  Sender: FDA-Public Use
  Company Number: 2011MA008593

PATIENT
  Age: 22 Year
  Sex: Female

DRUGS (7)
  1. PHENYTOIN [Suspect]
     Indication: HALLUCINATION
     Dosage: 60 MCG/ML
  2. PHENYTOIN [Suspect]
     Indication: CONVULSION
     Dosage: 60 MCG/ML
  3. PHENYTOIN [Suspect]
     Indication: DYSPHORIA
     Dosage: 60 MCG/ML
  4. CLONAZEPAM [Concomitant]
  5. VALPROIC ACID [Concomitant]
  6. ACETAMINOPHEN [Concomitant]
  7. MIDAZOLAM HCL [Concomitant]

REACTIONS (17)
  - LOSS OF CONSCIOUSNESS [None]
  - COMA [None]
  - TOTAL BILE ACIDS INCREASED [None]
  - HYPOREFLEXIA [None]
  - GALLBLADDER DISORDER [None]
  - LUNG INFECTION [None]
  - MYDRIASIS [None]
  - BLOOD ALKALINE PHOSPHATASE INCREASED [None]
  - FUNGAL INFECTION [None]
  - GAMMA-GLUTAMYLTRANSFERASE INCREASED [None]
  - ALANINE AMINOTRANSFERASE INCREASED [None]
  - ENCEPHALITIS VIRAL [None]
  - CONDITION AGGRAVATED [None]
  - LIVER DISORDER [None]
  - CONVULSION [None]
  - XANTHOCHROMIA [None]
  - JAUNDICE [None]
